FAERS Safety Report 6449344-2 (Version None)
Quarter: 2009Q4

REPORT INFORMATION
  Report Type: 
  Country: None (occurrence: None)
  Receive Date: 20091120
  Receipt Date: 20091109
  Transmission Date: 20100525
  Serious: Yes (Other)
  Sender: FDA-Public Use
  Company Number: DE-ELI_LILLY_AND_COMPANY-DE200911002625

PATIENT
  Age: 75 Year
  Sex: Male

DRUGS (1)
  1. CIALIS [Suspect]
     Dosage: HALF TABLET OF 20 MG DOSE, IRREGULAR
     Route: 065

REACTIONS (2)
  - VITREOUS DETACHMENT [None]
  - VITREOUS HAEMORRHAGE [None]
